FAERS Safety Report 23875375 (Version 5)
Quarter: 2025Q2

REPORT INFORMATION
  Report Type: Other
  Country: US (occurrence: US)
  Receive Date: 20240520
  Receipt Date: 20250630
  Transmission Date: 20250717
  Serious: No
  Sender: TRAVERE THERAPEUTICS
  Company Number: US-TRAVERE-2024TVT00490

PATIENT
  Age: 44 Year
  Sex: Female

DRUGS (3)
  1. FILSPARI [Suspect]
     Active Substance: SPARSENTAN
     Indication: IgA nephropathy
     Route: 048
     Dates: start: 202404
  2. FILSPARI [Suspect]
     Active Substance: SPARSENTAN
     Indication: Haematuria
     Dosage: 200 MG TABLETS TAKE 2 TABS DAILY
     Route: 048
  3. FILSPARI [Suspect]
     Active Substance: SPARSENTAN
     Dosage: HCP RECOMMENDED TO TAKE HALF OF 400MG BEFORE BREAKFAST AND HALF OF 400MG BEFORE DINNER
     Route: 048

REACTIONS (8)
  - Alopecia [Unknown]
  - Swelling [Unknown]
  - Hypertension [Unknown]
  - Dizziness [Unknown]
  - Off label use [Unknown]
  - Skin hyperpigmentation [Unknown]
  - Glomerular filtration rate decreased [Unknown]
  - Blood pressure systolic decreased [None]

NARRATIVE: CASE EVENT DATE: 20240401
